FAERS Safety Report 5641165-3 (Version None)
Quarter: 2008Q1

REPORT INFORMATION
  Report Type: 
  Country: None (occurrence: None)
  Receive Date: 20080227
  Receipt Date: 20070214
  Transmission Date: 20080703
  Serious: No
  Sender: FDA-Public Use
  Company Number: A0639345A

PATIENT
  Age: 36 Year
  Sex: Female

DRUGS (1)
  1. NICORETTE [Suspect]

REACTIONS (2)
  - ERUCTATION [None]
  - SENSATION OF FOREIGN BODY [None]
